FAERS Safety Report 15654717 (Version 1)
Quarter: 2018Q4

REPORT INFORMATION
  Report Type: Spontaneous
  Country: CH (occurrence: CH)
  Receive Date: 20181126
  Receipt Date: 20181126
  Transmission Date: 20190205
  Serious: Yes (Hospitalization, Other)
  Sender: FDA-Public Use
  Company Number: CH-BRISTOL-MYERS SQUIBB COMPANY-BMS-2018-108804

PATIENT
  Age: 64 Year
  Sex: Male

DRUGS (2)
  1. IPILIMUMAB [Suspect]
     Active Substance: IPILIMUMAB
     Indication: MALIGNANT MELANOMA
     Dosage: 3 MG/KG, Q3WK
     Route: 042
     Dates: start: 201605
  2. INTERFERON [INTERFERON ALFA] [Suspect]
     Active Substance: INTERFERON ALFA-2A OR INTERFERON ALFA-2B
     Indication: MALIGNANT MELANOMA
     Route: 065

REACTIONS (4)
  - Hypopituitarism [Unknown]
  - Product use in unapproved indication [Unknown]
  - Erythema multiforme [Recovered/Resolved]
  - Fulminant type 1 diabetes mellitus [Unknown]

NARRATIVE: CASE EVENT DATE: 2016
